FAERS Safety Report 9694617 (Version 3)
Quarter: 2013Q4

REPORT INFORMATION
  Report Type: Spontaneous
  Country: FR (occurrence: FR)
  Receive Date: 20131119
  Receipt Date: 20131211
  Transmission Date: 20140711
  Serious: Yes (Hospitalization)
  Sender: FDA-Public Use
  Company Number: FR-ABBVIE-13X-056-1062090-00

PATIENT
  Age: 18 Year
  Sex: Male

DRUGS (1)
  1. DEPAKINE CHRONO [Suspect]
     Indication: PRODUCT USED FOR UNKNOWN INDICATION
     Dosage: 1 DOSAGE FORM; 3 TIMES A DAY
     Route: 048
     Dates: start: 201211, end: 20130220

REACTIONS (2)
  - Hepatocellular injury [Recovered/Resolved]
  - Pancreatitis acute [Recovered/Resolved]
